FAERS Safety Report 8138949-9 (Version None)
Quarter: 2012Q1

REPORT INFORMATION
  Report Type: 
  Country: None (occurrence: None)
  Receive Date: 20120215
  Receipt Date: 20120207
  Transmission Date: 20120608
  Serious: Yes (Other)
  Sender: FDA-Public Use
  Company Number: IE-ABBOTT-12P-229-0898907-00

PATIENT
  Sex: Male

DRUGS (1)
  1. HUMIRA [Suspect]
     Indication: ARTHRITIS

REACTIONS (3)
  - DRUG DOSE OMISSION [None]
  - JOINT STIFFNESS [None]
  - NEEDLE ISSUE [None]
